FAERS Safety Report 16531001 (Version 3)
Quarter: 2019Q3

REPORT INFORMATION
  Report Type: Spontaneous
  Country: DE (occurrence: DE)
  Receive Date: 20190705
  Receipt Date: 20190927
  Transmission Date: 20191004
  Serious: Yes (Other)
  Sender: FDA-Public Use
  Company Number: DE-AUROBINDO-AUR-APL-2019-031408

PATIENT
  Sex: Female

DRUGS (8)
  1. LETROZOLE. [Suspect]
     Active Substance: LETROZOLE
     Indication: BREAST CANCER
  2. KISQALI [Suspect]
     Active Substance: RIBOCICLIB
     Dosage: 600 MILLIGRAM, CYCLICAL  (SCHEMA 21 DAYS INTAKE THAN 7 DAYS PAUSE)
     Route: 048
     Dates: start: 20190315, end: 20190328
  3. LETROZOLE. [Suspect]
     Active Substance: LETROZOLE
     Indication: BREAST CANCER METASTATIC
     Dosage: 25 MILLIGRAM, ONCE A DAY
     Route: 048
     Dates: start: 20190208, end: 20190503
  4. KISQALI [Suspect]
     Active Substance: RIBOCICLIB
     Dosage: 400 MILLIGRAM, CYCLICAL  (SCHEMA 21 DAYS INTAKE THAN 7 DAYS PAUSE)
     Route: 048
     Dates: start: 20190329, end: 20190426
  5. KISQALI [Suspect]
     Active Substance: RIBOCICLIB
     Indication: BREAST CANCER METASTATIC
     Dosage: 200 MILLIGRAM, CYCLICAL  ((SCHEMA 21 DAYS INTAKE THAN 7 DAYS PAUSE)
     Route: 048
     Dates: start: 20190208
  6. AFINITOR [Concomitant]
     Active Substance: EVEROLIMUS
     Indication: BREAST CANCER
     Dosage: 5 MILLIGRAM, ONCE A DAY
     Route: 048
     Dates: start: 20190504
  7. KISQALI [Suspect]
     Active Substance: RIBOCICLIB
     Dosage: 600 MILLIGRAM, CYCLICAL (SCHEMA 21 DAYS INTAKE THAN 7 DAYS PAUSE)
     Route: 048
     Dates: start: 20190208, end: 20190307
  8. KISQALI [Suspect]
     Active Substance: RIBOCICLIB
     Dosage: 400 MILLIGRAM, CYCLICAL (SCHEMA 21 DAYS INTAKE THAN 7 DAYS PAUSE)
     Route: 048
     Dates: start: 20190405, end: 20190526

REACTIONS (4)
  - Carbohydrate antigen 15-3 increased [Recovering/Resolving]
  - White blood cell count decreased [Unknown]
  - Neutropenia [Recovered/Resolved]
  - Blood creatinine increased [Recovered/Resolved]

NARRATIVE: CASE EVENT DATE: 20190308
